FAERS Safety Report 21441284 (Version 1)
Quarter: 2022Q4

REPORT INFORMATION
  Report Type: Spontaneous
  Country: GR (occurrence: GR)
  Receive Date: 20221011
  Receipt Date: 20221011
  Transmission Date: 20230112
  Serious: Yes (Other)
  Sender: FDA-Public Use
  Company Number: GR-PFIZER INC-PV202200075444

PATIENT
  Age: 71 Year
  Sex: Female

DRUGS (1)
  1. IBRANCE [Suspect]
     Active Substance: PALBOCICLIB
     Dosage: 125 MG
     Dates: start: 202206

REACTIONS (4)
  - Carbohydrate antigen 19-9 increased [Unknown]
  - Carbohydrate antigen 15-3 increased [Unknown]
  - Osteoarthritis [Unknown]
  - Hypoaesthesia [Unknown]
